FAERS Safety Report 21053371 (Version 2)
Quarter: 2022Q3

REPORT INFORMATION
  Report Type: Spontaneous
  Country: TR (occurrence: TR)
  Receive Date: 20220707
  Receipt Date: 20220728
  Transmission Date: 20221026
  Serious: Yes (Hospitalization)
  Sender: FDA-Public Use
  Company Number: TR-TEVA-2022-TR-2052401

PATIENT
  Age: 64 Year
  Sex: Male

DRUGS (14)
  1. CLARITHROMYCIN [Suspect]
     Active Substance: CLARITHROMYCIN
     Indication: Evidence based treatment
     Route: 065
     Dates: start: 2018
  2. CLARITHROMYCIN [Suspect]
     Active Substance: CLARITHROMYCIN
     Indication: Pneumonia aspiration
  3. PIPERACILLIN AND TAZOBACTAM [Suspect]
     Active Substance: PIPERACILLIN SODIUM\TAZOBACTAM SODIUM
     Indication: Evidence based treatment
     Route: 065
     Dates: start: 2018
  4. PIPERACILLIN AND TAZOBACTAM [Suspect]
     Active Substance: PIPERACILLIN SODIUM\TAZOBACTAM SODIUM
     Indication: Pneumonia aspiration
  5. MEROPENEM [Suspect]
     Active Substance: MEROPENEM
     Indication: Evidence based treatment
     Dosage: 3 GRAM DAILY;
     Route: 065
     Dates: start: 2018
  6. MEROPENEM [Suspect]
     Active Substance: MEROPENEM
     Indication: Acinetobacter infection
  7. MEROPENEM [Suspect]
     Active Substance: MEROPENEM
     Indication: Escherichia infection
  8. COLISTIMETHATE SODIUM [Suspect]
     Active Substance: COLISTIMETHATE SODIUM
     Indication: Evidence based treatment
     Dosage: 2X1/2/DAY
     Route: 055
     Dates: start: 2018, end: 2018
  9. COLISTIMETHATE SODIUM [Suspect]
     Active Substance: COLISTIMETHATE SODIUM
     Indication: Acinetobacter infection
  10. COLISTIMETHATE SODIUM [Suspect]
     Active Substance: COLISTIMETHATE SODIUM
     Indication: Escherichia infection
  11. TIGECYCLINE [Suspect]
     Active Substance: TIGECYCLINE
     Indication: Evidence based treatment
     Dosage: LOADING DOSE
     Route: 042
     Dates: start: 2018
  12. TIGECYCLINE [Suspect]
     Active Substance: TIGECYCLINE
     Indication: Acinetobacter infection
     Route: 042
     Dates: start: 2018
  13. TIGECYCLINE [Suspect]
     Active Substance: TIGECYCLINE
     Indication: Escherichia infection
  14. ENOXAPARIN [Concomitant]
     Active Substance: ENOXAPARIN
     Indication: Ischaemic stroke
     Dosage: 0.6 CC
     Route: 058
     Dates: start: 2018

REACTIONS (2)
  - Trichosporon infection [Unknown]
  - Urinary tract infection [Unknown]

NARRATIVE: CASE EVENT DATE: 20180101
